FAERS Safety Report 19477236 (Version 1)
Quarter: 2021Q2

REPORT INFORMATION
  Report Type: Spontaneous
  Country: US (occurrence: US)
  Receive Date: 20210630
  Receipt Date: 20210630
  Transmission Date: 20210717
  Serious: Yes (Hospitalization)
  Sender: FDA-Public Use
  Company Number: None

PATIENT
  Age: 92 Year
  Sex: Female

DRUGS (2)
  1. SANDOSTATIN LAR DEPOT [Suspect]
     Active Substance: OCTREOTIDE ACETATE
     Indication: NEUROENDOCRINE TUMOUR
     Dosage: ?          OTHER FREQUENCY:OTHER;?
     Route: 030
     Dates: start: 201712
  2. SANDOSTATIN LAR DEPOT [Suspect]
     Active Substance: OCTREOTIDE ACETATE
     Indication: PLEURAL DISORDER
     Dosage: ?          OTHER FREQUENCY:OTHER;?
     Route: 030
     Dates: start: 201712

REACTIONS (2)
  - Urinary tract infection [None]
  - Sepsis [None]

NARRATIVE: CASE EVENT DATE: 20210604
